FAERS Safety Report 4697253-1 (Version None)
Quarter: 2005Q2

REPORT INFORMATION
  Report Type: 
  Country: None (occurrence: None)
  Receive Date: 20050622
  Receipt Date: 20050602
  Transmission Date: 20051028
  Serious: Yes (Death, Life-Threatening, Hospitalization, Other)
  Sender: FDA-Public Use
  Company Number: JP-BRISTOL-MYERS SQUIBB COMPANY-12997144

PATIENT
  Age: 54 Year
  Sex: Female

DRUGS (5)
  1. ENDOXAN [Suspect]
     Indication: BREAST CANCER
     Route: 041
     Dates: start: 20050517, end: 20050517
  2. ADRIACIN [Suspect]
     Indication: BREAST CANCER
     Route: 042
     Dates: start: 20050517, end: 20050517
  3. MEDICON [Concomitant]
     Dates: start: 20050322
  4. LOXONIN [Concomitant]
     Dates: start: 20050322
  5. SELBEX [Concomitant]
     Dates: start: 20050322

REACTIONS (2)
  - CARDIAC TAMPONADE [None]
  - HEPATITIS [None]
